FAERS Safety Report 8097477-X (Version None)
Quarter: 2012Q1

REPORT INFORMATION
  Report Type: 
  Country: None (occurrence: None)
  Receive Date: 20120128
  Receipt Date: 20110706
  Transmission Date: 20120608
  Serious: No
  Sender: FDA-Public Use
  Company Number: US-ABBOTT-11P-163-0837163-00

PATIENT
  Sex: Male

DRUGS (3)
  1. CYMBALTA [Concomitant]
     Indication: DEPRESSION
     Route: 048
  2. CONCERTA [Concomitant]
     Indication: ATTENTION DEFICIT/HYPERACTIVITY DISORDER
     Route: 048
  3. HUMIRA [Suspect]
     Indication: ANKYLOSING SPONDYLITIS
     Route: 058
     Dates: start: 20081101, end: 20110510

REACTIONS (5)
  - INSOMNIA [None]
  - COLD SWEAT [None]
  - BRONCHITIS [None]
  - FLUSHING [None]
  - COUGH [None]
